FAERS Safety Report 6709379-9 (Version None)
Quarter: 2010Q2

REPORT INFORMATION
  Report Type: 
  Country: None (occurrence: None)
  Receive Date: 20100504
  Receipt Date: 20100428
  Transmission Date: 20101027
  Serious: Yes (Other)
  Sender: FDA-Public Use
  Company Number: US-PERRIGO-10US009227

PATIENT
  Age: 55 Year
  Sex: Female
  Weight: 77.098 kg

DRUGS (2)
  1. IBUPROFEN AND DIPHENHYDRAMINE CITRATE [Suspect]
     Indication: DRUG USE FOR UNKNOWN INDICATION
     Dosage: 2 CAPLETS IN THE EVENING
     Route: 048
     Dates: start: 20100427, end: 20100427
  2. ASPIRIN [Concomitant]
     Indication: CARDIAC DISORDER
     Dosage: 1 CAPLET DAILY
     Route: 048

REACTIONS (5)
  - ERYTHEMA [None]
  - EYE PRURITUS [None]
  - OEDEMA PERIPHERAL [None]
  - PRURITUS [None]
  - THROAT TIGHTNESS [None]
